FAERS Safety Report 4405344-5 (Version None)
Quarter: 2004Q3

REPORT INFORMATION
  Report Type: 
  Country: None (occurrence: None)
  Receive Date: 20040715
  Receipt Date: 20040705
  Transmission Date: 20050211
  Serious: No
  Sender: FDA-Public Use
  Company Number: 2004SE03791

PATIENT
  Age: 68 Year
  Sex: Female
  Weight: 70 kg

DRUGS (7)
  1. AMIAS [Suspect]
     Indication: HYPERTENSION
     Dosage: 2 MG DAILY; PO
     Route: 048
     Dates: start: 20040526, end: 20040614
  2. FRUSEMIDE [Concomitant]
  3. DIGOXIN [Concomitant]
  4. ATORVASTATIN CALCIUM [Concomitant]
  5. ADIPINE - SLOW RELEASE [Concomitant]
  6. FLUTICASONE PROPIONATE [Concomitant]
  7. CITALOPRAM [Concomitant]

REACTIONS (3)
  - BLOOD FIBRINOGEN INCREASED [None]
  - COAGULOPATHY [None]
  - VASCULITIC RASH [None]
